FAERS Safety Report 26059856 (Version 1)
Quarter: 2025Q4

REPORT INFORMATION
  Report Type: Spontaneous
  Country: US (occurrence: None)
  Receive Date: 20251118
  Receipt Date: 20251118
  Transmission Date: 20260117
  Serious: No
  Sender: FDA-CTU
  Company Number: None

PATIENT

DRUGS (2)
  1. PIPER METHYSTICUM ROOT [Suspect]
     Active Substance: PIPER METHYSTICUM ROOT
     Indication: Energy increased
     Dosage: : 2 SERVINGS PER BOTTL ORAL?
     Route: 048
  2. PIPER METHYSTICUM ROOT [Suspect]
     Active Substance: PIPER METHYSTICUM ROOT
     Indication: Affective disorder

REACTIONS (3)
  - Substance use [None]
  - Drug dependence [None]
  - Product use in unapproved indication [None]
